FAERS Safety Report 8536478-1 (Version None)
Quarter: 2012Q3

REPORT INFORMATION
  Report Type: 
  Country: None (occurrence: None)
  Receive Date: 20120725
  Receipt Date: 20120720
  Transmission Date: 20120928
  Serious: Yes (Hospitalization, Other)
  Sender: FDA-Public Use
  Company Number: PHHY2012DE043958

PATIENT
  Age: 58 Year
  Sex: Male
  Weight: 75 kg

DRUGS (6)
  1. HUMALOG [Concomitant]
     Indication: DIABETES MELLITUS
     Dosage: 18 IE-10 IE-12IE
     Route: 058
     Dates: start: 20060101
  2. DIGITOXIN TAB [Concomitant]
     Indication: CARDIAC FAILURE CONGESTIVE
     Dosage: 0.07 MG, UNK
     Route: 048
     Dates: start: 20070101
  3. SUTENT [Suspect]
     Indication: METASTATIC RENAL CELL CARCINOMA
     Dosage: 50 MG, DAILY
     Route: 048
     Dates: start: 20090126, end: 20111018
  4. AFINITOR [Suspect]
     Indication: METASTATIC RENAL CELL CARCINOMA
     Dosage: 10 MG, QD
     Route: 048
     Dates: start: 20111104
  5. VALSARTAN [Concomitant]
     Indication: HYPERTENSION
     Dosage: 320 MG, DAILY
     Route: 048
     Dates: start: 20070101
  6. ALLOPURINOL [Concomitant]
     Indication: HYPERURICAEMIA
     Dosage: 300 MG, UNK
     Route: 048
     Dates: start: 20080101

REACTIONS (3)
  - NAIL BED INFLAMMATION [None]
  - ANAL ULCER [None]
  - ANAL FISTULA [None]
